FAERS Safety Report 15652716 (Version 4)
Quarter: 2019Q1

REPORT INFORMATION
  Report Type: Spontaneous
  Country: US (occurrence: US)
  Receive Date: 20181123
  Receipt Date: 20190326
  Transmission Date: 20190417
  Serious: Yes (Disabling, Other)
  Sender: FDA-Public Use
  Company Number: US-JNJFOC-20181112719

PATIENT
  Age: 56 Year
  Sex: Female
  Weight: 79.38 kg

DRUGS (1)
  1. TREMFYA [Suspect]
     Active Substance: GUSELKUMAB
     Indication: PSORIASIS
     Dosage: WEEK 0, 4, 9, 2 MONTHS
     Route: 058
     Dates: start: 20180822, end: 20181212

REACTIONS (2)
  - Palindromic rheumatism [Recovering/Resolving]
  - Arthralgia [Recovering/Resolving]

NARRATIVE: CASE EVENT DATE: 20181004
